FAERS Safety Report 25240317 (Version 3)
Quarter: 2025Q4

REPORT INFORMATION
  Report Type: Spontaneous
  Country: US (occurrence: US)
  Receive Date: 20250425
  Receipt Date: 20251009
  Transmission Date: 20260117
  Serious: No
  Sender: PFIZER
  Company Number: US-PFIZER INC-202500086978

PATIENT
  Age: 56 Year
  Sex: Female

DRUGS (2)
  1. ELELYSO [Suspect]
     Active Substance: TALIGLUCERASE ALFA
     Dosage: 1400 IU, IV EVERY 2 WEEKS
     Route: 042
  2. ELELYSO [Suspect]
     Active Substance: TALIGLUCERASE ALFA
     Dosage: 1400 IU, UNITS IV EVERY 2 WEEKS
     Route: 042

REACTIONS (3)
  - Influenza [Not Recovered/Not Resolved]
  - Malaise [Unknown]
  - Injury [Unknown]

NARRATIVE: CASE EVENT DATE: 20250401
